FAERS Safety Report 4561498-1 (Version None)
Quarter: 2005Q1

REPORT INFORMATION
  Report Type: 
  Country: None (occurrence: None)
  Receive Date: 20050121
  Receipt Date: 20050106
  Transmission Date: 20050727
  Serious: Yes (Congenital Anomaly)
  Sender: FDA-Public Use
  Company Number: 200500172

PATIENT
  Sex: Female
  Weight: 3.12 kg

DRUGS (2)
  1. TAZORAC [Suspect]
     Indication: DRUG EXPOSURE DURING PREGNANCY
  2. TRIAZ [Concomitant]

REACTIONS (8)
  - APLASIA CUTIS CONGENITA [None]
  - DOUBLE URETER [None]
  - DRUG EXPOSURE DURING PREGNANCY [None]
  - FEVER NEONATAL [None]
  - KIDNEY INFECTION [None]
  - LARGE FOR DATES BABY [None]
  - NEONATAL INFECTION [None]
  - URINARY TRACT INFECTION NEONATAL [None]
